FAERS Safety Report 11906833 (Version 1)
Quarter: 2016Q1

REPORT INFORMATION
  Report Type: Spontaneous
  Country: US (occurrence: US)
  Receive Date: 20160111
  Receipt Date: 20160111
  Transmission Date: 20160526
  Serious: Yes (Life-Threatening, Other)
  Sender: FDA-Public Use
  Company Number: US-MYLANLABS-2016M1000724

PATIENT

DRUGS (5)
  1. PREDNISOLONE. [Suspect]
     Active Substance: PREDNISOLONE
     Indication: MALFORMATION VENOUS
     Dosage: 2MG/KG DAILY
     Route: 048
  2. SILDENAFIL. [Suspect]
     Active Substance: SILDENAFIL
     Indication: MALFORMATION VENOUS
     Route: 065
  3. SIROLIMUS. [Suspect]
     Active Substance: SIROLIMUS
     Indication: MALFORMATION VENOUS
     Route: 048
  4. COTRIMOXAZOLE [Concomitant]
     Active Substance: SULFAMETHOXAZOLE\TRIMETHOPRIM
     Indication: ANTIFUNGAL PROPHYLAXIS
     Route: 065
  5. ETHANOL [Suspect]
     Active Substance: ALCOHOL
     Indication: MALFORMATION VENOUS
     Route: 065

REACTIONS (7)
  - Pulmonary hypertension [Unknown]
  - Rebound effect [Recovered/Resolved]
  - Hypertriglyceridaemia [Unknown]
  - Hyperbilirubinaemia [Unknown]
  - Drug effect incomplete [Unknown]
  - Diarrhoea [Unknown]
  - Hypercholesterolaemia [Unknown]
